FAERS Safety Report 4309060-X (Version None)
Quarter: 2004Q1

REPORT INFORMATION
  Report Type: 
  Country: None (occurrence: None)
  Receive Date: 20040227
  Receipt Date: 20040219
  Transmission Date: 20041129
  Serious: Yes (Hospitalization, Other)
  Sender: FDA-Public Use
  Company Number: 2003182904DE

PATIENT
  Age: 66 Year
  Sex: Female

DRUGS (11)
  1. CAMPTOSAR [Suspect]
     Indication: COLON CANCER
     Dosage: 145 MG, IV
     Route: 042
     Dates: start: 20031007, end: 20031009
  2. SPHEREX DSM 45/25 (AMILOMER) SOLUTION, STERILE [Suspect]
     Dates: start: 20031007, end: 20031009
  3. FLUOROURACIL [Suspect]
     Indication: COLON CANCER
     Dosage: 3600 MG, IV
     Route: 042
     Dates: start: 20031007, end: 20031009
  4. FOLINIC ACID (FOLINIC ACID) [Suspect]
     Indication: COLON CANCER
     Dosage: 900 MG, IV
     Route: 042
     Dates: start: 20031007, end: 20031009
  5. BELOC-ZOC MITE (METOPROLOL SUCCINATE) [Concomitant]
  6. BENZTHIAZIDE [Concomitant]
  7. LASIX [Concomitant]
  8. AZUFIBRAT [Concomitant]
  9. ALLOPURINOL [Concomitant]
  10. NEOMYCIN [Concomitant]
  11. NEOTRI (XIPAMIDE) [Concomitant]

REACTIONS (3)
  - BLOOD CREATININE INCREASED [None]
  - ENTEROCOLITIS [None]
  - HYPOKALAEMIA [None]
